FAERS Safety Report 7480649-2 (Version None)
Quarter: 2011Q2

REPORT INFORMATION
  Report Type: 
  Country: None (occurrence: None)
  Receive Date: 20110516
  Receipt Date: 20110504
  Transmission Date: 20111010
  Serious: Yes (Hospitalization, Other)
  Sender: FDA-Public Use
  Company Number: US-JNJFOC-20110502814

PATIENT
  Age: 21 Year
  Sex: Male

DRUGS (3)
  1. HALOPERIDOL [Suspect]
     Indication: AGITATION
     Route: 065
  2. ULTRAM [Concomitant]
     Route: 065
  3. NARCAN [Concomitant]
     Indication: SEDATION
     Route: 065

REACTIONS (3)
  - OXYGEN SATURATION DECREASED [None]
  - ASPIRATION [None]
  - SEDATION [None]
